FAERS Safety Report 22056381 (Version 1)
Quarter: 2023Q1

REPORT INFORMATION
  Report Type: Spontaneous
  Country: DE (occurrence: DE)
  Receive Date: 20230302
  Receipt Date: 20230302
  Transmission Date: 20230417
  Serious: Yes (Other)
  Sender: FDA-Public Use
  Company Number: DE-STRIDES ARCOLAB LIMITED-2023SP003098

PATIENT
  Age: 64 Year
  Sex: Male

DRUGS (4)
  1. FINGOLIMOD [Suspect]
     Active Substance: FINGOLIMOD
     Indication: Relapsing-remitting multiple sclerosis
     Dosage: UNK
     Route: 065
  2. AZD-1222 [Suspect]
     Active Substance: AZD-1222
     Indication: COVID-19 immunisation
     Dosage: UNK, SINGLE (FIRST DOSE)
     Route: 065
     Dates: start: 20210502, end: 20210502
  3. TOZINAMERAN [Suspect]
     Active Substance: TOZINAMERAN
     Indication: COVID-19 immunisation
     Dosage: UNK, SINGLE (SECOND DOSE)
     Route: 065
     Dates: start: 20210629, end: 20210629
  4. TOZINAMERAN [Suspect]
     Active Substance: TOZINAMERAN
     Dosage: UNK, SINGLE (THIRD DOSE)
     Route: 065
     Dates: start: 20211123, end: 20211123

REACTIONS (2)
  - Immunodeficiency [Unknown]
  - Vaccination failure [Unknown]
